FAERS Safety Report 16265383 (Version 1)
Quarter: 2019Q2

REPORT INFORMATION
  Report Type: Spontaneous
  Country: US (occurrence: US)
  Receive Date: 20190328
  Receipt Date: 20190328
  Transmission Date: 20190711
  Serious: No
  Sender: FDA-Public Use
  Company Number: None

PATIENT
  Age: 47 Year
  Sex: Female

DRUGS (1)
  1. BOTOX [Suspect]
     Active Substance: ONABOTULINUMTOXINA
     Route: 030
     Dates: start: 201809

REACTIONS (3)
  - Therapy cessation [None]
  - Injection site reaction [None]
  - Injection site swelling [None]

NARRATIVE: CASE EVENT DATE: 20181121
